FAERS Safety Report 15090883 (Version 1)
Quarter: 2018Q2

REPORT INFORMATION
  Report Type: Spontaneous
  Country: US (occurrence: US)
  Receive Date: 20180629
  Receipt Date: 20180629
  Transmission Date: 20180711
  Serious: Yes (Other)
  Sender: FDA-Public Use
  Company Number: US-AMGEN-USASP2011019830

PATIENT
  Age: 93 Year
  Sex: Male

DRUGS (10)
  1. LANOXIN [Concomitant]
     Active Substance: DIGOXIN
  2. LACTINOL [Concomitant]
     Active Substance: LACTIC ACID
  3. MAGNESIUM [Concomitant]
     Active Substance: MAGNESIUM
  4. MENTHOLATUM                        /00543601/ [Concomitant]
  5. SYNTHROID [Concomitant]
     Active Substance: LEVOTHYROXINE SODIUM
  6. CALCIUM [Concomitant]
     Active Substance: CALCIUM
     Dosage: 3 UNK, UNK
  7. AMLODIPINE [Concomitant]
     Active Substance: AMLODIPINE BESYLATE
  8. VITAMIN D                          /00107901/ [Concomitant]
     Active Substance: ERGOCALCIFEROL
  9. OMEPRAZOLE. [Concomitant]
     Active Substance: OMEPRAZOLE
  10. PROLIA [Suspect]
     Active Substance: DENOSUMAB
     Indication: OSTEOPOROSIS
     Dates: start: 20110315

REACTIONS (6)
  - Feeling abnormal [Unknown]
  - Hypocalcaemia [Unknown]
  - Paraesthesia [Unknown]
  - Dry skin [Unknown]
  - Hypoaesthesia [Recovered/Resolved]
  - Pain in extremity [Recovering/Resolving]

NARRATIVE: CASE EVENT DATE: 20110406
